FAERS Safety Report 23379651 (Version 3)
Quarter: 2024Q1

REPORT INFORMATION
  Report Type: Spontaneous
  Country: CN (occurrence: CN)
  Receive Date: 20240108
  Receipt Date: 20240116
  Transmission Date: 20240409
  Serious: Yes (Death, Other)
  Sender: FDA-Public Use
  Company Number: CN-BAYER-2024A001341

PATIENT
  Age: 74 Year
  Sex: Male
  Weight: 69 kg

DRUGS (10)
  1. XARELTO [Suspect]
     Active Substance: RIVAROXABAN
     Indication: Thrombosis prophylaxis
     Dosage: 10 MG, QD
     Route: 048
     Dates: start: 20230821
  2. AVELOX [Suspect]
     Active Substance: MOXIFLOXACIN HYDROCHLORIDE
     Dosage: 0.4 G, QD
     Route: 048
     Dates: start: 20230819, end: 20230821
  3. GINKGO BILOBA LEAF EXTRACT [Concomitant]
     Active Substance: GINKGO BILOBA LEAF EXTRACT
     Dosage: 2 DF, TID
     Route: 048
     Dates: start: 2009
  4. HYDROCHLOROTHIAZIDE\IRBESARTAN [Concomitant]
     Active Substance: HYDROCHLOROTHIAZIDE\IRBESARTAN
     Dosage: 1 DF, QD
     Route: 048
     Dates: start: 2009
  5. AMLODIPINE BESYLATE [Concomitant]
     Active Substance: AMLODIPINE BESYLATE
     Dosage: 5 MG, QD
     Route: 048
     Dates: start: 2009
  6. QIANG LI PI PA [Concomitant]
     Dosage: 10 ML, TID
     Route: 048
     Dates: start: 20211221
  7. CLINDAMYCIN PHOSPHATE [Concomitant]
     Active Substance: CLINDAMYCIN PHOSPHATE
     Dosage: 0.6 G, ONCE
     Route: 041
     Dates: start: 20230815, end: 20230815
  8. CLINDAMYCIN PHOSPHATE [Concomitant]
     Active Substance: CLINDAMYCIN PHOSPHATE
     Dosage: 0.6 G, BID
     Route: 041
     Dates: start: 20230816, end: 20230817
  9. GLYCERIN [Concomitant]
     Active Substance: GLYCERIN
     Dosage: UNK ML, PRN
     Dates: start: 20220621
  10. QI MAI TE [Concomitant]

REACTIONS (11)
  - Cerebral haemorrhage [Fatal]
  - Loss of consciousness [Fatal]
  - Metastases to bone [Fatal]
  - Arrhythmia [Unknown]
  - Heart rate increased [Unknown]
  - Respiratory rate increased [Unknown]
  - Thermometry abnormal [Unknown]
  - Anisocoria [Unknown]
  - Weight decreased [Not Recovered/Not Resolved]
  - Gastrooesophageal reflux disease [Not Recovered/Not Resolved]
  - Pelvic pain [Not Recovered/Not Resolved]

NARRATIVE: CASE EVENT DATE: 20231115
